FAERS Safety Report 7746255-7 (Version None)
Quarter: 2011Q3

REPORT INFORMATION
  Report Type: 
  Country: None (occurrence: None)
  Receive Date: 20110913
  Receipt Date: 20110908
  Transmission Date: 20111222
  Serious: Yes (Death, Hospitalization)
  Sender: FDA-Public Use
  Company Number: KR-BRISTOL-MYERS SQUIBB COMPANY-16008682

PATIENT
  Age: 57 Year
  Sex: Male

DRUGS (3)
  1. ERBITUX [Suspect]
     Indication: LIP AND/OR ORAL CAVITY CANCER
     Dosage: NO: OF ADMINISTRATION:15.
     Dates: start: 20100710, end: 20101022
  2. FLUOROURACIL [Concomitant]
     Indication: LIP AND/OR ORAL CAVITY CANCER
  3. CISPLATIN [Concomitant]
     Indication: LIP AND/OR ORAL CAVITY CANCER

REACTIONS (4)
  - NEOPLASM MALIGNANT [None]
  - SEPTIC SHOCK [None]
  - MUCOSAL INFLAMMATION [None]
  - METASTASES TO LUNG [None]
